FAERS Safety Report 5936336-2 (Version None)
Quarter: 2008Q4

REPORT INFORMATION
  Report Type: 
  Country: None (occurrence: None)
  Receive Date: 20081029
  Receipt Date: 20081029
  Transmission Date: 20090506
  Serious: Yes (Hospitalization)
  Sender: FDA-Public Use
  Company Number: None

PATIENT
  Age: 39 Year
  Sex: Female
  Weight: 55.3388 kg

DRUGS (1)
  1. LEXAPRO [Suspect]
     Indication: DEPRESSION
     Dosage: 10 MG ONCE A DAY
     Dates: start: 20081001, end: 20081010

REACTIONS (4)
  - HEAD TITUBATION [None]
  - MUSCLE TWITCHING [None]
  - SEROTONIN SYNDROME [None]
  - TREMOR [None]
